FAERS Safety Report 4555359-1 (Version None)
Quarter: 2005Q1

REPORT INFORMATION
  Report Type: 
  Country: None (occurrence: None)
  Receive Date: 20050118
  Receipt Date: 20050118
  Transmission Date: 20050727
  Serious: Yes (Death)
  Sender: FDA-Public Use
  Company Number: None

PATIENT
  Age: 48 Year
  Sex: Male
  Weight: 77.3 kg

DRUGS (6)
  1. PEG-INTRON [Suspect]
     Indication: HEPATITIS C
     Dosage: 5MCG/KG/WEEK SQ
     Route: 057
     Dates: start: 20040908, end: 20050105
  2. RIBAVIRIN [Suspect]
     Dosage: 1000 MG PO DAILY
     Route: 048
     Dates: start: 20040908, end: 20050104
  3. VALIUM [Concomitant]
  4. PERCOCET [Concomitant]
  5. TORADOL [Concomitant]
  6. MOTRIN [Concomitant]

REACTIONS (4)
  - BACK PAIN [None]
  - HYPOAESTHESIA [None]
  - NAUSEA [None]
  - SINUS BRADYCARDIA [None]
